FAERS Safety Report 7640062-1 (Version None)
Quarter: 2011Q3

REPORT INFORMATION
  Report Type: 
  Country: None (occurrence: None)
  Receive Date: 20110727
  Receipt Date: 20110714
  Transmission Date: 20111222
  Serious: Yes (Hospitalization, Other)
  Sender: FDA-Public Use
  Company Number: JP-B.I. PHARMACEUTICALS,INC./RIDGEFIELD-2011-DE-03620GD

PATIENT
  Sex: Male

DRUGS (3)
  1. PRAMIPEXOLE DIHYDROCHLORIDE [Suspect]
     Indication: PARKINSON'S DISEASE
     Dosage: 1.5 MG
     Route: 048
  2. CARBIDOPA + LEVODOPA [Suspect]
     Indication: PARKINSON'S DISEASE
     Dosage: 300 MG
     Route: 048
  3. DOMPERIDONE [Suspect]
     Indication: PARKINSON'S DISEASE
     Dosage: 3 ANZ
     Route: 048

REACTIONS (5)
  - NEUROLEPTIC MALIGNANT SYNDROME [None]
  - CONSTIPATION [None]
  - SUBILEUS [None]
  - DIARRHOEA [None]
  - MOVEMENT DISORDER [None]
